FAERS Safety Report 19158786 (Version 1)
Quarter: 2021Q2

REPORT INFORMATION
  Report Type: Report from Study
  Country: None (occurrence: US)
  Receive Date: 20210420
  Receipt Date: 20210420
  Transmission Date: 20210717
  Serious: Yes (Other)
  Sender: FDA-Public Use
  Company Number: US-ABBVIE-21K-163-3858304-00

PATIENT
  Age: 53 Year
  Sex: Female

DRUGS (2)
  1. HUMIRA [Suspect]
     Active Substance: ADALIMUMAB
     Indication: CROHN^S DISEASE
     Route: 058
  2. MODERNA COVID?19 VACCINE [Suspect]
     Active Substance: CX-024414
     Indication: COVID-19 IMMUNISATION
     Dosage: MANUFACTURER: MODERNA
     Route: 030
     Dates: start: 20210401, end: 20210401

REACTIONS (9)
  - Crohn^s disease [Not Recovered/Not Resolved]
  - Abortion induced [Unknown]
  - Defaecation urgency [Not Recovered/Not Resolved]
  - Induced labour [Unknown]
  - Malaise [Unknown]
  - Abdominal distension [Not Recovered/Not Resolved]
  - Dyspepsia [Not Recovered/Not Resolved]
  - Constipation [Not Recovered/Not Resolved]
  - Maternal exposure during pregnancy [Unknown]

NARRATIVE: CASE EVENT DATE: 20210404
